FAERS Safety Report 15761711 (Version 1)
Quarter: 2018Q4

REPORT INFORMATION
  Report Type: Spontaneous
  Country: GB (occurrence: GB)
  Receive Date: 20181226
  Receipt Date: 20181226
  Transmission Date: 20190205
  Serious: Yes (Hospitalization)
  Sender: FDA-Public Use
  Company Number: GB-PFIZER INC-2018519738

PATIENT
  Age: 38 Year
  Sex: Male

DRUGS (12)
  1. DIAZEPAM. [Suspect]
     Active Substance: DIAZEPAM
     Dosage: UNK (UP TO 28X5MG)
  2. DIAZEPAM. [Suspect]
     Active Substance: DIAZEPAM
     Dosage: 5 MG, (ONE DAILY OR AS NECESSARY)
  3. MIRTAZAPINE. [Suspect]
     Active Substance: MIRTAZAPINE
     Dosage: UNK (UP TO 28X45MG)
  4. QUETIAPINE. [Suspect]
     Active Substance: QUETIAPINE
     Dosage: 25 MG, AS NEEDED (THREE TIMES A DAY.)
  5. QUETIAPINE. [Suspect]
     Active Substance: QUETIAPINE
     Dosage: UNK (UP TO 28X300MG)
  6. ZOPICLONE [Suspect]
     Active Substance: ZOPICLONE
     Dosage: UNK (UP TO 28X7.5MG)
  7. ZOPICLONE [Suspect]
     Active Substance: ZOPICLONE
     Dosage: 7.5 UNK, AS NEEDED (AT NIGHT)
  8. QUETIAPINE. [Suspect]
     Active Substance: QUETIAPINE
     Dosage: UNK (UP TO 28X25MG)
  9. PREGABALIN. [Suspect]
     Active Substance: PREGABALIN
     Dosage: UNK (UP TO 523X200MG)
  10. PREGABALIN. [Suspect]
     Active Substance: PREGABALIN
     Dosage: 400 MG, 1X/DAY
  11. MIRTAZAPINE. [Suspect]
     Active Substance: MIRTAZAPINE
     Dosage: 45 MG, 1X/DAY (NIGHT)
  12. QUETIAPINE. [Suspect]
     Active Substance: QUETIAPINE
     Dosage: 300 MG, 1X/DAY

REACTIONS (2)
  - Intentional overdose [Recovering/Resolving]
  - Electrocardiogram QT prolonged [Unknown]

NARRATIVE: CASE EVENT DATE: 20181118
